FAERS Safety Report 17766900 (Version 1)
Quarter: 2020Q2

REPORT INFORMATION
  Report Type: Spontaneous
  Country: US (occurrence: US)
  Receive Date: 20200511
  Receipt Date: 20200511
  Transmission Date: 20200714
  Serious: Yes (Life-Threatening, Hospitalization)
  Sender: FDA-Public Use
  Company Number: None

PATIENT
  Age: 82 Year
  Sex: Male
  Weight: 81 kg

DRUGS (3)
  1. ORAL MEDS FOR HTN [Concomitant]
  2. KEPPRA [Suspect]
     Active Substance: LEVETIRACETAM
     Indication: SEIZURE
     Dosage: ?          OTHER STRENGTH:UNKNOWN;?
     Dates: start: 20160215, end: 20171230
  3. ORAL MEDS FOR DIABETES [Concomitant]

REACTIONS (12)
  - Chest discomfort [None]
  - Depression [None]
  - Cerebral artery thrombosis [None]
  - Generalised tonic-clonic seizure [None]
  - Focal dyscognitive seizures [None]
  - Drug interaction [None]
  - Suicidal ideation [None]
  - Aggression [None]
  - Agitation [None]
  - Glaucoma [None]
  - Suicide attempt [None]
  - Physical assault [None]

NARRATIVE: CASE EVENT DATE: 20160215
